FAERS Safety Report 4788300-7 (Version None)
Quarter: 2005Q4

REPORT INFORMATION
  Report Type: 
  Country: None (occurrence: None)
  Receive Date: 20051003
  Receipt Date: 20050920
  Transmission Date: 20060501
  Serious: Yes (Life-Threatening, Hospitalization, Disabling, Other)
  Sender: FDA-Public Use
  Company Number: 2005042730

PATIENT
  Age: 37 Year
  Sex: Male
  Weight: 68.18 kg

DRUGS (15)
  1. NEURONTIN [Suspect]
     Indication: BIPOLAR DISORDER
     Dosage: 900 MG (300 MG, 3 IN 1 D)
     Dates: start: 20020101, end: 20030101
  2. NEURONTIN [Suspect]
     Indication: DEPRESSION
     Dosage: 900 MG (300 MG, 3 IN 1 D)
     Dates: start: 20020101, end: 20030101
  3. XANAX [Suspect]
     Indication: ANXIETY
     Dates: start: 19970712
  4. MORPHINE [Suspect]
     Indication: ILL-DEFINED DISORDER
  5. PAXIL [Suspect]
     Indication: DEPRESSION
  6. PERCOCET [Suspect]
     Indication: ILL-DEFINED DISORDER
  7. BUSPAR [Suspect]
     Indication: ILL-DEFINED DISORDER
  8. CODEINE (CODEINE) [Concomitant]
  9. FIORICET [Concomitant]
  10. THORAZINE [Concomitant]
  11. AMBIEN [Concomitant]
  12. TRILEPTAL [Concomitant]
  13. LAMICTAL [Concomitant]
  14. SEROQUEL [Concomitant]
  15. CARISOPRODOL [Concomitant]

REACTIONS (42)
  - ABNORMAL BEHAVIOUR [None]
  - AGITATION [None]
  - ANAEMIA [None]
  - ANOREXIA [None]
  - ATELECTASIS [None]
  - BLINDNESS [None]
  - BRAIN CONTUSION [None]
  - COGNITIVE DISORDER [None]
  - CONCUSSION [None]
  - CONFUSIONAL STATE [None]
  - DACRYOCYSTITIS INFECTIVE [None]
  - DELIRIUM [None]
  - DEPRESSION [None]
  - DIABETES INSIPIDUS [None]
  - DRUG INEFFECTIVE [None]
  - DRUG SCREEN POSITIVE [None]
  - DYSPEPSIA [None]
  - DYSPHAGIA [None]
  - EYE EXCISION [None]
  - FACIAL BONES FRACTURE [None]
  - FACIAL PAIN [None]
  - FRACTURE [None]
  - GUN SHOT WOUND [None]
  - HAEMORRHAGE [None]
  - HAEMORRHAGE INTRACRANIAL [None]
  - HYPOCALCAEMIA [None]
  - HYPOMAGNESAEMIA [None]
  - LETHARGY [None]
  - LOSS OF CONSCIOUSNESS [None]
  - MULTIPLE DRUG OVERDOSE [None]
  - NERVE INJURY [None]
  - PLEURAL EFFUSION [None]
  - PNEUMOCEPHALUS [None]
  - PNEUMONIA BACTERIAL [None]
  - PSEUDOMONAS INFECTION [None]
  - PYREXIA [None]
  - RESPIRATORY FAILURE [None]
  - SINUS DISORDER [None]
  - SOFT TISSUE INJURY [None]
  - SPUTUM CULTURE POSITIVE [None]
  - SUICIDE ATTEMPT [None]
  - SUPRAVENTRICULAR TACHYCARDIA [None]
